FAERS Safety Report 24103974 (Version 1)
Quarter: 2024Q3

REPORT INFORMATION
  Report Type: Report from Study
  Country: US (occurrence: None)
  Receive Date: 20240717
  Receipt Date: 20240717
  Transmission Date: 20241017
  Serious: Yes (Other)
  Sender: ASTRAZENECA
  Company Number: 2021A009053

PATIENT
  Sex: Female

DRUGS (1)
  1. TAGRISSO [Suspect]
     Active Substance: OSIMERTINIB
     Indication: Lung carcinoma cell type unspecified stage 0
     Route: 048

REACTIONS (6)
  - Supraventricular tachycardia [Recovered/Resolved]
  - Dizziness [Recovering/Resolving]
  - Stomatitis [Recovering/Resolving]
  - Epistaxis [Recovered/Resolved]
  - Rash macular [Unknown]
  - Stress [Unknown]
